FAERS Safety Report 11297055 (Version 2)
Quarter: 2015Q4

REPORT INFORMATION
  Report Type: Spontaneous
  Country: US (occurrence: US)
  Receive Date: 20150722
  Receipt Date: 20151104
  Transmission Date: 20160304
  Serious: No
  Sender: FDA-Public Use
  Company Number: US-ELI_LILLY_AND_COMPANY-US201011007216

PATIENT
  Age: 72 Year
  Sex: Female

DRUGS (4)
  1. EVISTA [Suspect]
     Active Substance: RALOXIFENE HYDROCHLORIDE
     Indication: OSTEOPOROSIS
     Dosage: 60 MG, DAILY (1/D)
     Dates: end: 201004
  2. FORTEO [Suspect]
     Active Substance: TERIPARATIDE
     Indication: OSTEOPOROSIS
     Dosage: 20 UG, DAILY (1/D)
     Dates: start: 201004
  3. ACTONEL [Concomitant]
     Active Substance: RISEDRONATE SODIUM
     Dosage: UNK, UNKNOWN
  4. FOSAMAX [Concomitant]
     Active Substance: ALENDRONATE SODIUM
     Dosage: UNK, UNKNOWN

REACTIONS (7)
  - Arthralgia [Recovered/Resolved]
  - Gastric disorder [Unknown]
  - Intervertebral disc protrusion [Unknown]
  - Injection site nodule [Recovered/Resolved]
  - Musculoskeletal discomfort [Unknown]
  - Injection site pain [Unknown]
  - Injury [Unknown]

NARRATIVE: CASE EVENT DATE: 2010
